FAERS Safety Report 6495001-6 (Version None)
Quarter: 2009Q4

REPORT INFORMATION
  Report Type: 
  Country: None (occurrence: None)
  Receive Date: 20091214
  Receipt Date: 20090420
  Transmission Date: 20100525
  Serious: No
  Sender: FDA-Public Use
  Company Number: US-BRISTOL-MYERS SQUIBB COMPANY-14594410

PATIENT
  Age: 54 Year
  Sex: Female
  Weight: 73 kg

DRUGS (10)
  1. ABILIFY [Suspect]
     Indication: BIPOLAR DISORDER
     Dosage: INITIATED WITH 2MG QD 10MG-1/4 TABLET/DAY.
     Dates: start: 20081201, end: 20090101
  2. LAMICTAL [Concomitant]
  3. TRAZODONE HCL [Concomitant]
  4. XANAX [Concomitant]
  5. CALCIUM + VITAMIN D [Concomitant]
  6. MULTI-VITAMIN [Concomitant]
  7. ASCORBIC ACID [Concomitant]
  8. TYLENOL (CAPLET) [Concomitant]
  9. BENADRYL [Concomitant]
  10. AMBIEN [Concomitant]

REACTIONS (12)
  - ABDOMINAL DISCOMFORT [None]
  - ABDOMINAL PAIN UPPER [None]
  - CONFUSIONAL STATE [None]
  - CONSTIPATION [None]
  - DYSPHAGIA [None]
  - HEADACHE [None]
  - INCREASED APPETITE [None]
  - MOOD SWINGS [None]
  - RESTLESSNESS [None]
  - SLEEP DISORDER [None]
  - SOMNOLENCE [None]
  - WEIGHT INCREASED [None]
